FAERS Safety Report 5684537-3 (Version None)
Quarter: 2008Q1

REPORT INFORMATION
  Report Type: 
  Country: None (occurrence: None)
  Receive Date: 20080328
  Receipt Date: 20080317
  Transmission Date: 20080703
  Serious: Yes (Life-Threatening, Other)
  Sender: FDA-Public Use
  Company Number: JP-ROCHE-544376

PATIENT
  Age: 61 Year
  Sex: Female
  Weight: 66 kg

DRUGS (15)
  1. PEGASYS [Suspect]
     Route: 058
     Dates: start: 20070514, end: 20070601
  2. PEGASYS [Suspect]
     Dosage: DOSE DECREASED
     Route: 058
     Dates: start: 20070702, end: 20070702
  3. PEGASYS [Suspect]
     Dosage: DOSE INCREASED
     Route: 058
     Dates: start: 20070701, end: 20070801
  4. PEGASYS [Suspect]
     Dosage: DOSE DECREASED
     Route: 058
     Dates: start: 20070814, end: 20070820
  5. PEGASYS [Suspect]
     Dosage: DOSE INCREASED
     Route: 058
     Dates: start: 20070801, end: 20071101
  6. PEGASYS [Suspect]
     Dosage: DOSE DECREASED
     Route: 058
     Dates: start: 20071126, end: 20071126
  7. PEGASYS [Suspect]
     Dosage: DOSE INCREASED
     Route: 058
     Dates: start: 20071201, end: 20080115
  8. COPEGUS [Suspect]
     Route: 048
     Dates: start: 20070714, end: 20070917
  9. COPEGUS [Suspect]
     Dosage: DOSE DECREASED
     Route: 048
     Dates: start: 20070918, end: 20071014
  10. COPEGUS [Suspect]
     Dosage: DOSE DECREASED
     Route: 048
     Dates: start: 20071015, end: 20071021
  11. COPEGUS [Suspect]
     Dosage: DOSE DECREASED
     Route: 048
     Dates: start: 20071022, end: 20071216
  12. COPEGUS [Suspect]
     Dosage: DOSE INCREASED
     Route: 048
     Dates: start: 20071217, end: 20080114
  13. CALONAL [Concomitant]
     Route: 048
     Dates: start: 20070514, end: 20080121
  14. ENSURE LIQUID [Concomitant]
     Route: 048
     Dates: start: 20071009, end: 20080102
  15. NIPOLAZIN [Concomitant]
     Route: 048
     Dates: start: 20080108, end: 20080121

REACTIONS (6)
  - ANOREXIA [None]
  - BACTERAEMIA [None]
  - DISSEMINATED INTRAVASCULAR COAGULATION [None]
  - HYPERTHERMIA [None]
  - PANCYTOPENIA [None]
  - PYELONEPHRITIS [None]
